FAERS Safety Report 19740926 (Version 1)
Quarter: 2021Q3

REPORT INFORMATION
  Report Type: Spontaneous
  Country: DE (occurrence: DE)
  Receive Date: 20210825
  Receipt Date: 20210825
  Transmission Date: 20211014
  Serious: Yes (Other)
  Sender: FDA-Public Use
  Company Number: DE-AUROBINDO-AUR-APL-2021-035845

PATIENT
  Sex: Female

DRUGS (5)
  1. ANASTROZOLE. [Suspect]
     Active Substance: ANASTROZOLE
     Indication: BREAST CANCER METASTATIC
  2. KISQALI [Suspect]
     Active Substance: RIBOCICLIB
     Dosage: 400 MILLIGRAM, ONCE A DAY ( (21 DAYS INTAKE, 7 DAYS PAUSE)
     Route: 048
     Dates: start: 20200918, end: 20201203
  3. KISQALI [Suspect]
     Active Substance: RIBOCICLIB
     Dosage: 400 MILLIGRAM, ONCE A DAY ((21 DAYS INTAKE, 7 DAYS PAUSE)
     Route: 065
     Dates: start: 20201216
  4. ANASTROZOLE. [Suspect]
     Active Substance: ANASTROZOLE
     Indication: BREAST CANCER
     Dosage: 1 MILLIGRAM, ONCE A DAY
     Route: 048
     Dates: start: 20200725
  5. KISQALI [Suspect]
     Active Substance: RIBOCICLIB
     Indication: BREAST CANCER METASTATIC
     Dosage: 600 MILLIGRAM, ONCE A DAY ((21 DAYS INTAKE, 7 DAYS PAUSE)
     Route: 048
     Dates: start: 20200725, end: 20200805

REACTIONS (10)
  - Alopecia [Not Recovered/Not Resolved]
  - Bone pain [Not Recovered/Not Resolved]
  - Neutropenia [Recovered/Resolved]
  - Eastern Cooperative Oncology Group performance status worsened [Not Recovered/Not Resolved]
  - Constipation [Not Recovered/Not Resolved]
  - Depression [Not Recovered/Not Resolved]
  - Fatigue [Recovering/Resolving]
  - Myalgia [Not Recovered/Not Resolved]
  - Dry skin [Not Recovered/Not Resolved]
  - Arthralgia [Not Recovered/Not Resolved]

NARRATIVE: CASE EVENT DATE: 20200914
